FAERS Safety Report 4612407-8 (Version None)
Quarter: 2005Q1

REPORT INFORMATION
  Report Type: 
  Country: None (occurrence: None)
  Receive Date: 20050316
  Receipt Date: 20050308
  Transmission Date: 20050727
  Serious: Yes (Death, Hospitalization)
  Sender: FDA-Public Use
  Company Number: 163-20785-04050559

PATIENT
  Age: 62 Year
  Sex: Female

DRUGS (6)
  1. THALOMID [Suspect]
     Indication: MULTIPLE MYELOMA
     Dosage: 200 MG, QD, PER ORAL
     Route: 048
     Dates: start: 20021105, end: 20040501
  2. DEXAMETHASONE [Suspect]
     Indication: MULTIPLE MYELOMA
  3. ZOMETA [Concomitant]
  4. ARANESP [Concomitant]
  5. MORPHINE SULFATE [Concomitant]
  6. MS CONTIN [Concomitant]

REACTIONS (22)
  - AORTIC DISORDER [None]
  - ATELECTASIS [None]
  - CARDIAC FAILURE CONGESTIVE [None]
  - CARDIAC MURMUR [None]
  - CARDIOMEGALY [None]
  - DILATATION VENTRICULAR [None]
  - DISEASE PROGRESSION [None]
  - DRUG TOLERANCE DECREASED [None]
  - ELECTROCARDIOGRAM ABNORMAL [None]
  - INFERIOR VENA CAVAL OCCLUSION [None]
  - KYPHOSIS [None]
  - MALIGNANT NEOPLASM PROGRESSION [None]
  - PANCYTOPENIA [None]
  - PULMONARY EMBOLISM [None]
  - PULMONARY HYPERTENSION [None]
  - PULMONARY VASCULAR DISORDER [None]
  - RESPIRATORY FAILURE [None]
  - RIGHT VENTRICULAR FAILURE [None]
  - SEDATION [None]
  - SOMNOLENCE [None]
  - TREATMENT NONCOMPLIANCE [None]
  - TRICUSPID VALVE INCOMPETENCE [None]
